FAERS Safety Report 10476892 (Version 1)
Quarter: 2014Q3

REPORT INFORMATION
  Report Type: Spontaneous
  Country: GB (occurrence: GB)
  Receive Date: 20140926
  Receipt Date: 20140926
  Transmission Date: 20150326
  Serious: Yes (Death, Other)
  Sender: FDA-Public Use
  Company Number: GB-ROCHE-1466653

PATIENT
  Age: 58 Year
  Sex: Female
  Weight: 72.5 kg

DRUGS (22)
  1. FLUOXETINE [Concomitant]
     Active Substance: FLUOXETINE\FLUOXETINE HYDROCHLORIDE
  2. ITRACONAZOLE. [Concomitant]
     Active Substance: ITRACONAZOLE
  3. NAPROXEN. [Concomitant]
     Active Substance: NAPROXEN
     Route: 065
  4. SALBUTAMOL [Concomitant]
     Active Substance: ALBUTEROL
  5. TIOTROPIUM [Concomitant]
     Active Substance: TIOTROPIUM
  6. ELLESTE-SOLO [Concomitant]
  7. FEXOFENADINE HYDROCHLORIDE. [Concomitant]
     Active Substance: FEXOFENADINE HYDROCHLORIDE
  8. NITROFURANTOIN. [Concomitant]
     Active Substance: NITROFURANTOIN
  9. OXYBUTYNIN [Concomitant]
     Active Substance: OXYBUTYNIN
  10. TRAMADOL [Concomitant]
     Active Substance: TRAMADOL
  11. ESOMEPRAZOLE [Concomitant]
     Active Substance: ESOMEPRAZOLE
  12. UNIPHYLLIN CONTINUS [Concomitant]
     Active Substance: THEOPHYLLINE
  13. ATORVASTATIN [Concomitant]
     Active Substance: ATORVASTATIN
  14. NITRAZEPAM [Concomitant]
     Active Substance: NITRAZEPAM
  15. PARACETAMOL [Concomitant]
     Active Substance: ACETAMINOPHEN
  16. GABAPENTIN. [Concomitant]
     Active Substance: GABAPENTIN
  17. SERETIDE [Concomitant]
     Active Substance: FLUTICASONE FUROATE\SALMETEROL XINAFOATE
  18. OMALIZUMAB [Suspect]
     Active Substance: OMALIZUMAB
     Indication: ASTHMA
     Route: 065
     Dates: start: 20140813
  19. FOLIC ACID. [Concomitant]
     Active Substance: FOLIC ACID
  20. PREDNISOLONE PIVALATE [Concomitant]
     Active Substance: PREDNISOLONE PIVALATE
  21. MIRABEGRON [Concomitant]
     Active Substance: MIRABEGRON
  22. TRAZODONE [Concomitant]
     Active Substance: TRAZODONE HYDROCHLORIDE

REACTIONS (2)
  - Sudden death [Fatal]
  - Dyspnoea [Not Recovered/Not Resolved]

NARRATIVE: CASE EVENT DATE: 20140906
